FAERS Safety Report 24599344 (Version 3)
Quarter: 2025Q4

REPORT INFORMATION
  Report Type: Spontaneous
  Country: US (occurrence: US)
  Receive Date: 20241110
  Receipt Date: 20251015
  Transmission Date: 20260118
  Serious: No
  Sender: SANOFI AVENTIS
  Company Number: US-SA-2024SA315287

PATIENT
  Age: 3 Year
  Sex: Male

DRUGS (1)
  1. DUPIXENT [Suspect]
     Active Substance: DUPILUMAB
     Indication: Eosinophilic oesophagitis
     Dosage: 200 MG, QOW
     Route: 058
     Dates: start: 20241025

REACTIONS (4)
  - Seasonal allergy [Unknown]
  - Dust allergy [Unknown]
  - Allergy to animal [Unknown]
  - Injection site erythema [Not Recovered/Not Resolved]

NARRATIVE: CASE EVENT DATE: 20241001
